FAERS Safety Report 8478438-5 (Version None)
Quarter: 2012Q2

REPORT INFORMATION
  Report Type: 
  Country: None (occurrence: None)
  Receive Date: 20120629
  Receipt Date: 20111018
  Transmission Date: 20120825
  Serious: No
  Sender: FDA-Public Use
  Company Number: US-ABBOTT-11P-163-0865867-00

PATIENT
  Sex: Male
  Weight: 72.64 kg

DRUGS (5)
  1. VIRAMUNE [Concomitant]
     Indication: PRODUCT USED FOR UNKNOWN INDICATION
  2. LEXIVA [Concomitant]
     Indication: PRODUCT USED FOR UNKNOWN INDICATION
  3. NORVIR [Suspect]
     Indication: PRODUCT USED FOR UNKNOWN INDICATION
     Dates: start: 20020101
  4. NORVIR [Suspect]
     Dosage: LIQUID
     Dates: start: 19990101
  5. VIREAD [Concomitant]
     Indication: PRODUCT USED FOR UNKNOWN INDICATION

REACTIONS (1)
  - MEDICATION RESIDUE [None]
